FAERS Safety Report 14142129 (Version 1)
Quarter: 2017Q4

REPORT INFORMATION
  Report Type: Report from Study
  Country: US (occurrence: US)
  Receive Date: 20171030
  Receipt Date: 20171030
  Transmission Date: 20180321
  Serious: No
  Sender: FDA-Public Use
  Company Number: US-IPSEN BIOPHARMACEUTICALS, INC.-2012-3464

PATIENT
  Age: 8 Year
  Sex: Male
  Weight: 17 kg

DRUGS (3)
  1. INCRELEX [Suspect]
     Active Substance: MECASERMIN
     Dosage: 123.53 UG/KG
     Route: 058
  2. INCRELEX [Suspect]
     Active Substance: MECASERMIN
     Indication: GROWTH HORMONE DEFICIENCY
     Dosage: 147.05 UG/KG
     Route: 058
     Dates: start: 20120702
  3. NUTROPIN [Concomitant]
     Active Substance: SOMATROPIN
     Dosage: NOT REPORTED
     Route: 051

REACTIONS (5)
  - Retching [Recovered/Resolved]
  - Pallor [Recovered/Resolved]
  - Nausea [Unknown]
  - Lethargy [Recovered/Resolved]
  - Vomiting [Unknown]

NARRATIVE: CASE EVENT DATE: 20120718
